FAERS Safety Report 10706861 (Version 1)
Quarter: 2015Q1

REPORT INFORMATION
  Report Type: Spontaneous
  Country: NL (occurrence: NL)
  Receive Date: 20150113
  Receipt Date: 20150113
  Transmission Date: 20150721
  Serious: Yes (Other)
  Sender: FDA-Public Use
  Company Number: NL-PFIZER INC-2015007997

PATIENT
  Age: 65 Year
  Sex: Male

DRUGS (1)
  1. LIPITOR [Suspect]
     Active Substance: ATORVASTATIN CALCIUM
     Dosage: UNK

REACTIONS (14)
  - Paraesthesia [Unknown]
  - Arthralgia [Unknown]
  - Myalgia [Unknown]
  - Muscle spasms [Unknown]
  - Vision blurred [Unknown]
  - Tinnitus [Unknown]
  - Pruritus [Unknown]
  - Insomnia [Unknown]
  - Joint swelling [Unknown]
  - Blindness [Unknown]
  - Deafness [Unknown]
  - Headache [Unknown]
  - Skin exfoliation [Unknown]
  - Nasal inflammation [Unknown]

NARRATIVE: CASE EVENT DATE: 20120101
